FAERS Safety Report 22037862 (Version 1)
Quarter: 2023Q1

REPORT INFORMATION
  Report Type: Spontaneous
  Country: US (occurrence: None)
  Receive Date: 20230227
  Receipt Date: 20230227
  Transmission Date: 20230417
  Serious: Yes (Other)
  Sender: FDA-Public Use
  Company Number: US-ROCHE-3225394

PATIENT
  Sex: Male

DRUGS (2)
  1. ROZLYTREK [Suspect]
     Active Substance: ENTRECTINIB
     Indication: Lung neoplasm malignant
     Route: 048
     Dates: start: 20221101
  2. ROZLYTREK [Suspect]
     Active Substance: ENTRECTINIB
     Route: 048
     Dates: start: 202210

REACTIONS (7)
  - Deafness [Unknown]
  - Pyrexia [Unknown]
  - Dizziness [Unknown]
  - Decreased appetite [Unknown]
  - Skin disorder [Recovered/Resolved]
  - Taste disorder [Unknown]
  - Visual impairment [Unknown]
